FAERS Safety Report 7701417-X (Version None)
Quarter: 2011Q3

REPORT INFORMATION
  Report Type: 
  Country: None (occurrence: None)
  Receive Date: 20110822
  Receipt Date: 20110811
  Transmission Date: 20111222
  Serious: Yes (Other)
  Sender: FDA-Public Use
  Company Number: JP-JNJFOC-20110411491

PATIENT
  Sex: Male
  Weight: 68 kg

DRUGS (9)
  1. REMICADE [Suspect]
     Indication: RHEUMATOID ARTHRITIS
     Dosage: 6TH DOSE OF INFUSION
     Route: 042
     Dates: start: 20080625
  2. REMICADE [Suspect]
     Route: 042
     Dates: start: 20080501
  3. OPHTHALM-K [Concomitant]
     Indication: PURPURA
     Route: 048
     Dates: start: 20070817
  4. AZULFIDINE [Concomitant]
     Indication: RHEUMATOID ARTHRITIS
     Route: 048
     Dates: start: 20080207
  5. PREDNISOLONE [Concomitant]
     Indication: RHEUMATOID ARTHRITIS
     Route: 048
     Dates: start: 20060111
  6. REMICADE [Suspect]
     Route: 042
     Dates: start: 20080121
  7. METHOTREXATE [Concomitant]
     Indication: RHEUMATOID ARTHRITIS
     Route: 048
     Dates: start: 20060410
  8. LOXONIN [Concomitant]
     Indication: RHEUMATOID ARTHRITIS
     Route: 048
     Dates: start: 20061016
  9. GASLON [Concomitant]
     Indication: GASTRITIS
     Route: 048
     Dates: start: 20080404

REACTIONS (2)
  - CELLULITIS [None]
  - BURSITIS [None]
